FAERS Safety Report 20715711 (Version 1)
Quarter: 2022Q2

REPORT INFORMATION
  Report Type: Spontaneous
  Country: US (occurrence: US)
  Receive Date: 20220415
  Receipt Date: 20220415
  Transmission Date: 20220721
  Serious: Yes (Other)
  Sender: FDA-Public Use
  Company Number: US-GILEAD-2022-0577583

PATIENT
  Age: 33 Year
  Sex: Female

DRUGS (3)
  1. HEPSERA [Suspect]
     Active Substance: ADEFOVIR DIPIVOXIL
     Indication: Chronic hepatitis B
     Dosage: 10 MG, QD
     Route: 065
  2. NORETHINDRONE [Concomitant]
     Active Substance: NORETHINDRONE
  3. ENTECAVIR [Concomitant]
     Active Substance: ENTECAVIR
     Dosage: 1 MG, QD

REACTIONS (1)
  - Tubulointerstitial nephritis [Unknown]
